FAERS Safety Report 11956786 (Version 1)
Quarter: 2016Q1

REPORT INFORMATION
  Report Type: Spontaneous
  Country: US (occurrence: US)
  Receive Date: 20160126
  Receipt Date: 20160126
  Transmission Date: 20160526
  Serious: Yes (Other)
  Sender: FDA-Public Use
  Company Number: US-PFIZER INC-2016032998

PATIENT
  Age: 23 Year
  Sex: Male

DRUGS (3)
  1. PHENYTOIN. [Suspect]
     Active Substance: PHENYTOIN
     Indication: SEIZURE
     Dosage: 600 MG (11 MG/KG) PER DAY
  2. CHLORAMPHENICOL [Interacting]
     Active Substance: CHLORAMPHENICOL
     Indication: SEIZURE
     Dosage: 600 MG, 4X/DAY
     Route: 048
  3. PHENOBARBITAL SODIUM. [Interacting]
     Active Substance: PHENOBARBITAL SODIUM
     Indication: SEIZURE
     Dosage: 250 MG (4.5 MG/KG) PER DAY

REACTIONS (6)
  - Muscle twitching [Unknown]
  - Dysarthria [Unknown]
  - Lethargy [Unknown]
  - Inhibitory drug interaction [Unknown]
  - Sedation [Unknown]
  - Anticonvulsant drug level increased [Unknown]
